FAERS Safety Report 6265089-6 (Version None)
Quarter: 2009Q3

REPORT INFORMATION
  Report Type: 
  Country: None (occurrence: None)
  Receive Date: 20090709
  Receipt Date: 20090709
  Transmission Date: 20100115
  Serious: Yes (Other)
  Sender: FDA-Public Use
  Company Number: None

PATIENT
  Sex: Female
  Weight: 129.7287 kg

DRUGS (1)
  1. BYSTOLIC [Suspect]
     Indication: HYPERTENSION
     Dosage: 1 TABLET PER DAY APRIL THRU JUNE

REACTIONS (4)
  - ABDOMINAL PAIN UPPER [None]
  - INSOMNIA [None]
  - NAUSEA [None]
  - PARAESTHESIA [None]
